FAERS Safety Report 18509813 (Version 3)
Quarter: 2021Q1

REPORT INFORMATION
  Report Type: Spontaneous
  Country: CH (occurrence: CH)
  Receive Date: 20201117
  Receipt Date: 20210317
  Transmission Date: 20210419
  Serious: Yes (Hospitalization)
  Sender: FDA-Public Use
  Company Number: CH-BAUSCH-BL-2020-031123

PATIENT
  Age: 87 Year
  Sex: Female

DRUGS (2)
  1. RITUXIMAB. [Concomitant]
     Active Substance: RITUXIMAB
     Indication: CHRONIC LYMPHOCYTIC LEUKAEMIA
  2. ZYCLARA [Suspect]
     Active Substance: IMIQUIMOD
     Indication: ACTINIC KERATOSIS
     Dosage: DURING TWO WEEKS
     Route: 061
     Dates: start: 2019, end: 201911

REACTIONS (11)
  - Lip swelling [Recovering/Resolving]
  - Oral mucosa erosion [Recovering/Resolving]
  - Stomatitis [Recovering/Resolving]
  - Application site reaction [Recovered/Resolved]
  - Aphthous ulcer [Recovering/Resolving]
  - Hypophagia [Unknown]
  - Dysphagia [Recovered/Resolved]
  - Pyrexia [Recovered/Resolved]
  - Lip erosion [Recovering/Resolving]
  - Fluid intake reduced [Unknown]
  - Malaise [Recovered/Resolved]

NARRATIVE: CASE EVENT DATE: 20190815
